FAERS Safety Report 4908141-7 (Version None)
Quarter: 2006Q1

REPORT INFORMATION
  Report Type: 
  Country: None (occurrence: None)
  Receive Date: 20060210
  Receipt Date: 20050930
  Transmission Date: 20060701
  Serious: Yes (Hospitalization)
  Sender: FDA-Public Use
  Company Number: PR-MERCK-0510USA01612

PATIENT
  Age: 65 Year
  Sex: Female
  Weight: 70 kg

DRUGS (2)
  1. VIOXX [Suspect]
     Indication: BACK PAIN
     Route: 048
     Dates: start: 20020101, end: 20040707
  2. VIOXX [Suspect]
     Indication: ARTHRALGIA
     Route: 048
     Dates: start: 20020101, end: 20040707

REACTIONS (16)
  - ANGINA PECTORIS [None]
  - ARRHYTHMIA [None]
  - CARDIOVASCULAR DISORDER [None]
  - CEREBROVASCULAR ACCIDENT [None]
  - CHEST PAIN [None]
  - EMOTIONAL DISORDER [None]
  - HYPERTENSION [None]
  - INJURY [None]
  - LACUNAR INFARCTION [None]
  - MENTAL DISORDER [None]
  - MYOCARDIAL INFARCTION [None]
  - ORGAN FAILURE [None]
  - PRESCRIBED OVERDOSE [None]
  - PULMONARY EMBOLISM [None]
  - TACHYCARDIA [None]
  - THROMBOSIS [None]
